FAERS Safety Report 14532842 (Version 3)
Quarter: 2019Q4

REPORT INFORMATION
  Report Type: Report from Study
  Country: None (occurrence: KR)
  Receive Date: 20180214
  Receipt Date: 20191117
  Transmission Date: 20200122
  Serious: Yes (Hospitalization)
  Sender: FDA-Public Use
  Company Number: KR-ABBVIE-18S-090-2255338-00

PATIENT
  Sex: Female
  Weight: 49 kg

DRUGS (11)
  1. EPERISONE HCL [Concomitant]
     Indication: ARTHRITIS
     Dosage: UNIT DOSE: 1
     Route: 048
     Dates: start: 20180125, end: 20180125
  2. VIEKIRAX [Suspect]
     Active Substance: OMBITASVIR\PARITAPREVIR\RITONAVIR
     Indication: HEPATITIS C
     Route: 048
     Dates: start: 20171204, end: 20180225
  3. ADCAL [Concomitant]
     Indication: OSTEOPOROSIS
     Dosage: UNIT DOSE: 2
     Route: 048
     Dates: start: 20180131, end: 20180208
  4. ACTONEL EC [Concomitant]
     Indication: OSTEOPOROSIS
     Dosage: UNIT DOSE: 1
     Route: 048
     Dates: start: 20180131, end: 20180131
  5. EXVIERA [Suspect]
     Active Substance: DASABUVIR
     Indication: HEPATITIS C
     Route: 048
     Dates: start: 20171204, end: 20180225
  6. ZOLPIDEM TARTRATE. [Concomitant]
     Active Substance: ZOLPIDEM TARTRATE
     Indication: INSOMNIA
     Dosage: UNIT DOSE: 1
     Route: 048
     Dates: start: 20180130, end: 20180208
  7. HYDROCORTISONE. [Concomitant]
     Active Substance: HYDROCORTISONE
     Indication: CUSHING^S SYNDROME
     Dosage: UNIT DOSE: 2
     Route: 048
     Dates: start: 20180131, end: 20180208
  8. DIAZEPAM. [Concomitant]
     Active Substance: DIAZEPAM
     Indication: ANXIETY
     Dosage: UNIT DOSE: 1
     Route: 048
     Dates: start: 20180131, end: 20180208
  9. VARIDASE [Concomitant]
     Indication: ARTHRITIS
     Dosage: UNIT DOSE: 2
     Route: 048
     Dates: start: 20180125, end: 20180125
  10. ENTELON [Concomitant]
     Indication: ARTHRITIS
     Dosage: UNIT DOSE: 2
     Route: 048
     Dates: start: 20180125, end: 20180125
  11. ESCITALOPRAM OXALATE. [Concomitant]
     Active Substance: ESCITALOPRAM OXALATE
     Indication: ANXIETY
     Dosage: UNIT DOSE: 1
     Route: 048
     Dates: start: 20180131, end: 20180208

REACTIONS (1)
  - Face oedema [Recovering/Resolving]

NARRATIVE: CASE EVENT DATE: 20180108
